FAERS Safety Report 5748977-6 (Version None)
Quarter: 2008Q2

REPORT INFORMATION
  Report Type: 
  Country: None (occurrence: None)
  Receive Date: 20080527
  Receipt Date: 20080520
  Transmission Date: 20081010
  Serious: Yes (Hospitalization)
  Sender: FDA-Public Use
  Company Number: US-BRISTOL-MYERS SQUIBB COMPANY-14203541

PATIENT
  Sex: Male

DRUGS (3)
  1. PRINIVIL [Suspect]
     Indication: HYPERTENSION
     Route: 048
  2. IBUPROFEN [Suspect]
     Indication: PAIN
     Route: 065
  3. POTASSIUM CHLORIDE [Suspect]
     Route: 065

REACTIONS (5)
  - ASTHENIA [None]
  - DIALYSIS [None]
  - FATIGUE [None]
  - HYPERKALAEMIA [None]
  - RENAL FAILURE ACUTE [None]
